FAERS Safety Report 7821326-5 (Version None)
Quarter: 2011Q4

REPORT INFORMATION
  Report Type: 
  Country: None (occurrence: None)
  Receive Date: 20111018
  Receipt Date: 20110725
  Transmission Date: 20120403
  Serious: No
  Sender: FDA-Public Use
  Company Number: US-ASTRAZENECA-2011SE38241

PATIENT
  Age: 67 Year
  Sex: Female
  Weight: 68.9 kg

DRUGS (5)
  1. PRIMIDONE [Concomitant]
  2. SYMBICORT [Suspect]
     Dosage: DAILY
     Route: 055
     Dates: start: 20090101
  3. SINGULAIR [Concomitant]
  4. NEXIUM [Concomitant]
  5. LIPITOR [Concomitant]

REACTIONS (2)
  - HAEMORRHOID OPERATION [None]
  - DYSPHONIA [None]
